FAERS Safety Report 22094560 (Version 1)
Quarter: 2023Q1

REPORT INFORMATION
  Report Type: Spontaneous
  Country: MX (occurrence: MX)
  Receive Date: 20230314
  Receipt Date: 20230314
  Transmission Date: 20230417
  Serious: Yes (Hospitalization)
  Sender: FDA-Public Use
  Company Number: MX-TEVA-2023-MX-2866061

PATIENT
  Age: 34 Year
  Sex: Male

DRUGS (5)
  1. FILGRASTIM [Suspect]
     Active Substance: FILGRASTIM
     Indication: Neutropenia
     Dosage: 300 MCG
     Route: 058
  2. PIPERACILLIN [Concomitant]
     Active Substance: PIPERACILLIN
     Indication: Evidence based treatment
     Route: 065
  3. TAZOBACTAM [Concomitant]
     Active Substance: TAZOBACTAM
     Indication: Evidence based treatment
     Route: 065
  4. VANCOMYCIN [Concomitant]
     Active Substance: VANCOMYCIN
     Indication: Evidence based treatment
     Route: 065
  5. ACYCLOVIR [Concomitant]
     Active Substance: ACYCLOVIR
     Indication: Evidence based treatment
     Route: 065

REACTIONS (3)
  - Glomerulonephritis proliferative [Unknown]
  - Monoclonal immunoglobulin present [Unknown]
  - Acute kidney injury [Unknown]
